FAERS Safety Report 4625607-8 (Version None)
Quarter: 2005Q1

REPORT INFORMATION
  Report Type: 
  Country: None (occurrence: None)
  Receive Date: 20050330
  Receipt Date: 20050303
  Transmission Date: 20050727
  Serious: Yes (Hospitalization)
  Sender: FDA-Public Use
  Company Number: 10583

PATIENT
  Age: 8 Year
  Sex: Male

DRUGS (8)
  1. METHOTREXATE [Suspect]
     Indication: BURKITT'S LYMPHOMA
     Dosage: 15 MG PER_CYCLE/2 G/M2 PER_CYCLE IT/IV
  2. VINCRISTINE [Suspect]
     Indication: BURKITT'S LYMPHOMA
     Dosage: 1 MG/M2 PER_CYCLE/2 MG/M2 PER_CYCLE IV
     Route: 042
  3. CYCLOPHOSPHAMIDE [Suspect]
     Indication: BURKITT'S LYMPHOMA
     Dosage: 300 MG/M2 PER_CYCLE/500 MG/M2 PER_CYCLE IV
     Route: 042
  4. HYDROCORTISONE [Suspect]
     Indication: BURKITT'S LYMPHOMA
     Dosage: 15 MG PER_CYCLE IT
     Route: 037
  5. PREDNISONE [Suspect]
     Indication: BURKITT'S LYMPHOMA
     Dosage: 30 MG/M2 BID PO
     Route: 048
  6. COTRIM [Concomitant]
  7. LEUCOVORIN CALCIUM [Concomitant]
  8. SODIUM BICARBONATE [Concomitant]

REACTIONS (3)
  - ANAEMIA [None]
  - BACTERAEMIA [None]
  - DRUG TOXICITY [None]
